FAERS Safety Report 25520325 (Version 1)
Quarter: 2025Q3

REPORT INFORMATION
  Report Type: Report from Study
  Country: TH (occurrence: TH)
  Receive Date: 20250704
  Receipt Date: 20250704
  Transmission Date: 20251020
  Serious: Yes (Death, Other)
  Sender: TAKEDA
  Company Number: TH-JNJFOC-20250620887

PATIENT
  Age: 67 Year
  Sex: Female

DRUGS (3)
  1. BORTEZOMIB [Suspect]
     Active Substance: BORTEZOMIB
     Indication: Plasma cell myeloma
     Dosage: 1.95 MILLIGRAM, 1/WEEK
  2. BORTEZOMIB [Suspect]
     Active Substance: BORTEZOMIB
  3. DARZALEX [Suspect]
     Active Substance: DARATUMUMAB
     Indication: Plasma cell myeloma
     Dosage: 1800 MILLIGRAM, 1/WEEK
     Dates: start: 20250409

REACTIONS (2)
  - Death [Fatal]
  - Feeling abnormal [Unknown]
